FAERS Safety Report 5826821-6 (Version None)
Quarter: 2008Q3

REPORT INFORMATION
  Report Type: 
  Country: None (occurrence: None)
  Receive Date: 20080725
  Receipt Date: 20080711
  Transmission Date: 20090109
  Serious: Yes (Hospitalization)
  Sender: FDA-Public Use
  Company Number: 2008S1007094

PATIENT
  Age: 50 Year
  Sex: Female
  Weight: 87.9978 kg

DRUGS (10)
  1. CYTOMEL [Suspect]
     Indication: HYPOTHYROIDISM
     Dosage: 12.5 UG;EVERY MORNING; ORAL; 6.25 UG;EVERY MORNING;
     Route: 048
  2. LEVOTHYROXINE SODIUM [Suspect]
     Indication: HYPOTHYROIDISM
     Dosage: 50 UG;AT BEDTIME;ORAL; 25 UG;AT BEDTIME;ORAL
     Route: 048
     Dates: start: 20080201, end: 20080419
  3. LEVOTHYROXINE SODIUM [Suspect]
     Indication: HYPOTHYROIDISM
     Dosage: 50 UG;AT BEDTIME;ORAL; 25 UG;AT BEDTIME;ORAL
     Route: 048
     Dates: start: 20080401
  4. NEURONTIN [Concomitant]
  5. ESTRADIOL [Concomitant]
  6. DOMPERIDONE [Concomitant]
  7. BENICAR [Concomitant]
  8. ACIPHEX [Concomitant]
  9. HYDROCHLOROTHIAZIDE [Concomitant]
  10. VITAMINS NOS [Concomitant]

REACTIONS (26)
  - ABASIA [None]
  - ACTIVITIES OF DAILY LIVING IMPAIRED [None]
  - ANOREXIA [None]
  - ASTHENIA [None]
  - BLOOD GLUCOSE DECREASED [None]
  - CHEST PAIN [None]
  - DEPRESSION [None]
  - DYSPEPSIA [None]
  - DYSPNOEA [None]
  - DYSSTASIA [None]
  - FALL [None]
  - FATIGUE [None]
  - GAIT DISTURBANCE [None]
  - HYPERTENSION [None]
  - HYPOAESTHESIA [None]
  - MALAISE [None]
  - MENTAL DISORDER [None]
  - MYALGIA [None]
  - NAUSEA [None]
  - PAIN [None]
  - PRESYNCOPE [None]
  - RASH [None]
  - RENAL FAILURE [None]
  - SYNCOPE [None]
  - VOMITING [None]
  - WEIGHT DECREASED [None]
